FAERS Safety Report 9366511 (Version 1)
Quarter: 2013Q2

REPORT INFORMATION
  Report Type: Spontaneous
  Country: US (occurrence: None)
  Receive Date: 20130620
  Receipt Date: 20130620
  Transmission Date: 20140414
  Serious: Yes (Hospitalization)
  Sender: FDA-Public Use
  Company Number: 20130031

PATIENT
  Age: 40 Year
  Sex: Female
  Weight: 114.76 kg

DRUGS (1)
  1. SUBSYS (FENTANYL SUBLINGUAL SPRAY) 400MCG, INSYS THERAPEUTICS [Suspect]
     Indication: PAIN
     Dosage: 400 MCG EVERY 4 HOURS, SL
     Route: 060

REACTIONS (4)
  - Road traffic accident [None]
  - Arthralgia [None]
  - Craniocerebral injury [None]
  - Pelvic adhesions [None]
